FAERS Safety Report 18054801 (Version 2)
Quarter: 2020Q3

REPORT INFORMATION
  Report Type: Spontaneous
  Country: US (occurrence: US)
  Receive Date: 20200722
  Receipt Date: 20200724
  Transmission Date: 20201103
  Serious: No
  Sender: FDA-Public Use
  Company Number: US-PFIZER INC-2020278600

PATIENT
  Sex: Male

DRUGS (3)
  1. ATROPINE. [Concomitant]
     Active Substance: ATROPINE
     Indication: PREMEDICATION
     Dosage: 0.3 MG
  2. KETAMINE HCL [Suspect]
     Active Substance: KETAMINE HYDROCHLORIDE
     Indication: GENERAL ANAESTHESIA
     Dosage: 250 MG
  3. PENTOBARBITAL. [Concomitant]
     Active Substance: PENTOBARBITAL
     Indication: PREMEDICATION
     Dosage: 100 MG

REACTIONS (2)
  - Product use issue [Unknown]
  - Off label use [Unknown]
